FAERS Safety Report 16461496 (Version 1)
Quarter: 2019Q2

REPORT INFORMATION
  Report Type: Spontaneous
  Country: US (occurrence: US)
  Receive Date: 20190621
  Receipt Date: 20190621
  Transmission Date: 20190711
  Serious: Yes (Hospitalization, Other)
  Sender: FDA-Public Use
  Company Number: US-CIPLA LTD.-2019US04561

PATIENT

DRUGS (7)
  1. METOPROLOL. [Suspect]
     Active Substance: METOPROLOL
     Indication: ISCHAEMIC CARDIOMYOPATHY
     Dosage: 50 MILLIGRAM PER DAY
     Route: 048
  2. ACETYLSALICYLIC ACID [Concomitant]
     Active Substance: ASPIRIN
     Indication: CORONARY ARTERY DISEASE
     Dosage: 81 MILLIGRAM PER DAY
     Route: 048
  3. AMIODARONE [Concomitant]
     Active Substance: AMIODARONE
     Indication: ATRIAL FIBRILLATION
     Dosage: UNK
     Route: 065
  4. ATORVASTATIN [Concomitant]
     Active Substance: ATORVASTATIN
     Indication: CORONARY ARTERY DISEASE
     Dosage: 80 MILLIGRAM PER DAY
     Route: 048
  5. WARFARIN [Concomitant]
     Active Substance: WARFARIN
     Indication: ATRIAL FIBRILLATION
     Dosage: UNK
     Route: 065
  6. LISINOPRIL. [Suspect]
     Active Substance: LISINOPRIL
     Indication: ISCHAEMIC CARDIOMYOPATHY
     Dosage: 2.5 MILLIGRAM PER DAY
     Route: 048
  7. SPIRONOLACTONE. [Concomitant]
     Active Substance: SPIRONOLACTONE
     Indication: CORONARY ARTERY DISEASE
     Dosage: 25 MILLIGRAM PER DAY
     Route: 048

REACTIONS (2)
  - Orthostatic hypotension [Recovered/Resolved]
  - Presyncope [Recovered/Resolved]
